FAERS Safety Report 9374341 (Version 1)
Quarter: 2013Q2

REPORT INFORMATION
  Report Type: Spontaneous
  Country: US (occurrence: None)
  Receive Date: 20130627
  Receipt Date: 20130627
  Transmission Date: 20140414
  Serious: Yes (Other)
  Sender: FDA-Public Use
  Company Number: None

PATIENT
  Age: 69 Year
  Sex: Male

DRUGS (1)
  1. ZELBORAF [Suspect]
     Dosage: 270 MG TAKE 7 DAILY ORAL
     Route: 048
     Dates: start: 201302

REACTIONS (8)
  - Rash [None]
  - Memory impairment [None]
  - Sunburn [None]
  - Pain [None]
  - Palmar-plantar erythrodysaesthesia syndrome [None]
  - Periorbital disorder [None]
  - Yellow skin [None]
  - Photophobia [None]
